FAERS Safety Report 4674698-7 (Version None)
Quarter: 2005Q2

REPORT INFORMATION
  Report Type: 
  Country: None (occurrence: None)
  Receive Date: 20050526
  Receipt Date: 20050325
  Transmission Date: 20051028
  Serious: Yes (Disabling)
  Sender: FDA-Public Use
  Company Number: US-BRISTOL-MYERS SQUIBB COMPANY-12911996

PATIENT
  Age: 50 Year
  Sex: Female

DRUGS (11)
  1. PRAVACHOL [Suspect]
     Indication: DYSLIPIDAEMIA
     Route: 048
     Dates: start: 20050201, end: 20050311
  2. SERZONE [Concomitant]
  3. XANAX [Concomitant]
  4. FLONASE [Concomitant]
  5. NEURONTIN [Concomitant]
  6. NIASPAN [Concomitant]
  7. NEXIUM [Concomitant]
  8. MULTI-VITAMIN [Concomitant]
  9. BREWERS YEAST [Concomitant]
  10. MILK THISTLE [Concomitant]
  11. GLUCOSAMINE SULFATE [Concomitant]

REACTIONS (2)
  - AFFECT LABILITY [None]
  - FATIGUE [None]
